FAERS Safety Report 5314267-9 (Version None)
Quarter: 2007Q2

REPORT INFORMATION
  Report Type: 
  Country: None (occurrence: None)
  Receive Date: 20070425
  Receipt Date: 20070411
  Transmission Date: 20071010
  Serious: Yes (Other)
  Sender: FDA-Public Use
  Company Number: EGEL2007A014

PATIENT
  Age: 49 Year
  Sex: Female
  Weight: 48.9885 kg

DRUGS (5)
  1. ESTROGEL [Suspect]
     Indication: HYSTERECTOMY
     Dosage: 1.25 GRAMS AT BEDTIME TRANSCUTANEOUS
     Route: 003
     Dates: start: 20070308, end: 20070319
  2. ESTROGEL [Suspect]
     Indication: HYSTERECTOMY
     Dosage: 1.25 GRAMS AT BEDTIME TRANSCUTANEOUS
     Route: 003
     Dates: start: 20070404
  3. REMERON [Concomitant]
  4. XANAX [Concomitant]
  5. ASPIRIN [Concomitant]

REACTIONS (3)
  - EPISTAXIS [None]
  - HAEMOPTYSIS [None]
  - LUNG NEOPLASM [None]
